FAERS Safety Report 6297772-0 (Version None)
Quarter: 2009Q3

REPORT INFORMATION
  Report Type: 
  Country: None (occurrence: None)
  Receive Date: 20090804
  Receipt Date: 20090804
  Transmission Date: 20100115
  Serious: Yes (Other)
  Sender: FDA-Public Use
  Company Number: None

PATIENT
  Age: 59 Year
  Sex: Female
  Weight: 86.1834 kg

DRUGS (4)
  1. AVELOX [Suspect]
     Indication: LOWER RESPIRATORY TRACT INFECTION
     Dosage: 400 MG -1 TABLET-, ONCE A DAY, PO
     Route: 048
     Dates: start: 20090507, end: 20090509
  2. ACTIVELLA [Concomitant]
  3. PRILOSEC [Concomitant]
  4. ... [Concomitant]

REACTIONS (7)
  - CONTUSION [None]
  - NAUSEA [None]
  - PRURITUS [None]
  - PYREXIA [None]
  - SKIN EXFOLIATION [None]
  - TENDONITIS [None]
  - VOMITING [None]
